FAERS Safety Report 13102595 (Version 2)
Quarter: 2017Q2

REPORT INFORMATION
  Report Type: Spontaneous
  Country: DE (occurrence: DE)
  Receive Date: 20170110
  Receipt Date: 20170428
  Transmission Date: 20170830
  Serious: Yes (Life-Threatening, Hospitalization, Other)
  Sender: FDA-Public Use
  Company Number: DE-TEVA-702990GER

PATIENT
  Age: 65 Year
  Sex: Female
  Weight: 96 kg

DRUGS (11)
  1. METFORMIN [Suspect]
     Active Substance: METFORMIN HYDROCHLORIDE
     Route: 048
  2. DOXAZOSIN 4 MG [Concomitant]
     Active Substance: DOXAZOSIN\DOXAZOSIN MESYLATE
     Dosage: 4 MILLIGRAM DAILY; 0-0-0-1
  3. NIMODIPIN 100 MG [Concomitant]
     Dosage: 200 MILLIGRAM DAILY; 1-0-1
  4. EXENATIDE [Suspect]
     Active Substance: EXENATIDE
     Indication: DIABETES MELLITUS
     Route: 058
     Dates: start: 201606, end: 201609
  5. SEVIKAR 40/10/12.5 MG [Concomitant]
     Dosage: 1 DOSAGE FORMS DAILY; 1-0-0
  6. ALLOPURINOL 300 MG [Concomitant]
     Active Substance: ALLOPURINOL
     Dosage: 300 MILLIGRAM DAILY; 1-0-0
  7. TORASEMIDE 10 MG [Concomitant]
     Active Substance: TORSEMIDE
     Dosage: 5 MILLIGRAM DAILY; 0.5-0-0
  8. LENDORMIN [Concomitant]
     Active Substance: BROTIZOLAM
     Dosage: 1 FOR THE NIGHT
  9. VELMETIA 50/1000 MG [Concomitant]
     Dosage: 2 DOSAGE FORMS DAILY; 1-0-1
  10. INSULIN TOUJEO 16 IU [Concomitant]
  11. BYDUREON 2 MG FERTIGPEN [Concomitant]
     Dosage: 1-0-0
     Route: 058
     Dates: start: 201609

REACTIONS (6)
  - Lactic acidosis [Recovered/Resolved]
  - Acute kidney injury [Recovered/Resolved]
  - Thrombocytopenia [Recovered/Resolved]
  - Toxicity to various agents [Recovered/Resolved]
  - Pickwickian syndrome [Recovered/Resolved]
  - Vitamin D deficiency [Recovered/Resolved]

NARRATIVE: CASE EVENT DATE: 20160916
